FAERS Safety Report 20061847 (Version 2)
Quarter: 2021Q4

REPORT INFORMATION
  Report Type: Spontaneous
  Country: RO (occurrence: RO)
  Receive Date: 20211112
  Receipt Date: 20211116
  Transmission Date: 20220303
  Serious: Yes (Other)
  Sender: FDA-Public Use
  Company Number: RO-MYLANLABS-2021M1047374

PATIENT
  Age: 71 Year
  Sex: Female

DRUGS (2)
  1. CLARITHROMYCIN [Suspect]
     Active Substance: CLARITHROMYCIN
     Indication: Atypical pneumonia
     Dosage: 1000 MILLIGRAM, QD, 2 X 500MG/ DAY, 1000 MILLIGRAM, DAILY, DIVIDED IN TWO DOSES
     Route: 048
  2. CLARITHROMYCIN [Suspect]
     Active Substance: CLARITHROMYCIN
     Indication: Drug provocation test
     Dosage: UNK
     Route: 065

REACTIONS (3)
  - Symmetrical drug-related intertriginous and flexural exanthema [Recovered/Resolved]
  - Diarrhoea [Unknown]
  - Rash pruritic [Recovered/Resolved]
